FAERS Safety Report 16849254 (Version 1)
Quarter: 2019Q4

REPORT INFORMATION
  Report Type: Spontaneous
  Country: US (occurrence: US)
  Receive Date: 20190924
  Receipt Date: 20190924
  Transmission Date: 20200122
  Serious: Yes (Other)
  Sender: FDA-Public Use
  Company Number: None

PATIENT
  Age: 33 Year
  Sex: Male
  Weight: 72 kg

DRUGS (1)
  1. GAMUNEX-C [Suspect]
     Active Substance: HUMAN IMMUNOGLOBULIN G
     Indication: CHRONIC INFLAMMATORY DEMYELINATING POLYRADICULONEUROPATHY
     Dosage: ?          QUANTITY:1500 ML;OTHER FREQUENCY:4 DAY INFUSION;OTHER ROUTE:INFUSED INTO PATIENTS POWERPORT OVER 4D?

REACTIONS (6)
  - Back pain [None]
  - Product administration error [None]
  - Flank pain [None]
  - Diarrhoea [None]
  - Infusion related reaction [None]
  - Dyspnoea [None]

NARRATIVE: CASE EVENT DATE: 20190916
